FAERS Safety Report 16306164 (Version 3)
Quarter: 2022Q1

REPORT INFORMATION
  Report Type: Spontaneous
  Country: US (occurrence: None)
  Receive Date: 20190513
  Receipt Date: 20220125
  Transmission Date: 20220424
  Serious: Yes (Other)
  Sender: FDA-Public Use
  Company Number: 2019SE64116

PATIENT
  Age: 30568 Day
  Sex: Male
  Weight: 78 kg

DRUGS (32)
  1. PRILOSEC [Suspect]
     Active Substance: OMEPRAZOLE MAGNESIUM
     Indication: Gastrooesophageal reflux disease
     Route: 048
     Dates: start: 199910, end: 201808
  2. PRILOSEC [Suspect]
     Active Substance: OMEPRAZOLE MAGNESIUM
     Indication: Gastrooesophageal reflux disease
     Route: 048
     Dates: start: 1999, end: 2018
  3. PRILOSEC [Suspect]
     Active Substance: OMEPRAZOLE MAGNESIUM
     Indication: Gastrooesophageal reflux disease
     Dosage: GENERIC
     Route: 065
     Dates: start: 2018
  4. PRILOSEC [Suspect]
     Active Substance: OMEPRAZOLE MAGNESIUM
     Indication: Gastrooesophageal reflux disease
     Dosage: 20.0MG UNKNOWN
     Route: 048
     Dates: start: 20171229
  5. PRILOSEC [Suspect]
     Active Substance: OMEPRAZOLE MAGNESIUM
     Indication: Gastrooesophageal reflux disease
     Dosage: 20.0MG UNKNOWN
     Route: 048
     Dates: start: 20180410
  6. PRILOSEC [Suspect]
     Active Substance: OMEPRAZOLE MAGNESIUM
     Indication: Gastrooesophageal reflux disease
     Dosage: 20.0MG UNKNOWN
     Route: 048
     Dates: start: 20141204
  7. PRILOSEC [Suspect]
     Active Substance: OMEPRAZOLE MAGNESIUM
     Indication: Gastrooesophageal reflux disease
     Dosage: GENERIC20.0MG UNKNOWN
     Route: 065
     Dates: start: 20170329
  8. NEXIUM 24HR [Suspect]
     Active Substance: ESOMEPRAZOLE MAGNESIUM
     Indication: Gastrooesophageal reflux disease
     Route: 048
     Dates: start: 2014, end: 2018
  9. PREVACID [Suspect]
     Active Substance: LANSOPRAZOLE
     Indication: Gastrooesophageal reflux disease
     Route: 065
     Dates: start: 199910, end: 201808
  10. PREVACID [Suspect]
     Active Substance: LANSOPRAZOLE
     Indication: Gastrooesophageal reflux disease
     Route: 065
     Dates: start: 1999, end: 2018
  11. PREVACID [Suspect]
     Active Substance: LANSOPRAZOLE
     Indication: Gastrooesophageal reflux disease
     Dosage: GENERIC
     Route: 065
     Dates: start: 2012
  12. PREVACID [Suspect]
     Active Substance: LANSOPRAZOLE
     Indication: Gastrooesophageal reflux disease
     Dosage: GENERIC
     Route: 065
     Dates: start: 201712
  13. ATORVASTATIN [Concomitant]
     Active Substance: ATORVASTATIN
     Indication: Blood cholesterol
     Dates: start: 201201
  14. ELIQUIS [Concomitant]
     Active Substance: APIXABAN
     Indication: Anticoagulant therapy
     Dates: start: 201901
  15. CARVEDILOL [Concomitant]
     Active Substance: CARVEDILOL
     Indication: Blood pressure abnormal
     Dates: start: 201201
  16. CHLORTHALIDONE [Concomitant]
     Active Substance: CHLORTHALIDONE
     Indication: Hypervolaemia
     Dates: start: 201501
  17. LISINOPRIL [Concomitant]
     Active Substance: LISINOPRIL
     Indication: Hypertension
     Dates: start: 200901
  18. RANITIDINE [Concomitant]
     Active Substance: RANITIDINE
     Dates: start: 20180830, end: 20180830
  19. ASPIRIN [Concomitant]
     Active Substance: ASPIRIN
  20. ASCORBIC ACID [Concomitant]
     Active Substance: ASCORBIC ACID
  21. CALCIUM CARBONATE [Concomitant]
     Active Substance: CALCIUM CARBONATE
  22. DIAZEPAM [Concomitant]
     Active Substance: DIAZEPAM
  23. SELENIUM [Concomitant]
     Active Substance: SELENIUM
  24. VITAMIN B6 [Concomitant]
     Active Substance: PYRIDOXINE HYDROCHLORIDE
  25. ZINC [Concomitant]
     Active Substance: ZINC
  26. CEFAZOLIN [Concomitant]
     Active Substance: CEFAZOLIN
  27. PREDNISONE [Concomitant]
     Active Substance: PREDNISONE
  28. LOSARTAN [Concomitant]
     Active Substance: LOSARTAN
  29. CODEINE [Concomitant]
     Active Substance: CODEINE
  30. KEFLEX [Concomitant]
     Active Substance: CEPHALEXIN
  31. SILDENAFIL [Concomitant]
     Active Substance: SILDENAFIL
  32. SULFAMETHOXAZOLE\TRIMETHOPRIM [Concomitant]
     Active Substance: SULFAMETHOXAZOLE\TRIMETHOPRIM
     Dates: start: 20180417

REACTIONS (4)
  - Chronic kidney disease [Not Recovered/Not Resolved]
  - Nephrogenic anaemia [Unknown]
  - Acute kidney injury [Unknown]
  - Renal failure [Unknown]

NARRATIVE: CASE EVENT DATE: 20150316
